FAERS Safety Report 15330273 (Version 1)
Quarter: 2018Q3

REPORT INFORMATION
  Report Type: Spontaneous
  Country: MX (occurrence: MX)
  Receive Date: 20180829
  Receipt Date: 20180829
  Transmission Date: 20181010
  Serious: Yes (Hospitalization, Disabling)
  Sender: FDA-Public Use
  Company Number: MX-SAKK-2018SA221848AA

PATIENT
  Age: 75 Year
  Sex: Female
  Weight: 46 kg

DRUGS (2)
  1. LANTUS SOLOSTAR [Suspect]
     Active Substance: INSULIN GLARGINE
     Indication: TYPE 2 DIABETES MELLITUS
     Dosage: 18 IU, QD
     Route: 058
     Dates: start: 200507
  2. OMEPRAZOLE. [Concomitant]
     Active Substance: OMEPRAZOLE
     Indication: PRODUCT USED FOR UNKNOWN INDICATION
     Dosage: 1 UNK, QD

REACTIONS (4)
  - Epistaxis [Recovered/Resolved]
  - Limb amputation [Recovered/Resolved]
  - Abdominal pain upper [Recovered/Resolved]
  - Limb amputation [Recovered/Resolved]

NARRATIVE: CASE EVENT DATE: 2012
